FAERS Safety Report 15683548 (Version 2)
Quarter: 2019Q1

REPORT INFORMATION
  Report Type: Spontaneous
  Country: CA (occurrence: CA)
  Receive Date: 20181204
  Receipt Date: 20190125
  Transmission Date: 20190417
  Serious: Yes (Other)
  Sender: FDA-Public Use
  Company Number: CA-TEVA-2018-CA-981559

PATIENT
  Age: 56 Year
  Sex: Female

DRUGS (13)
  1. CELECOXIB. [Suspect]
     Active Substance: CELECOXIB
     Indication: RHEUMATOID ARTHRITIS
     Route: 065
  2. METHOTREXATE. [Suspect]
     Active Substance: METHOTREXATE
     Indication: RHEUMATOID ARTHRITIS
     Route: 058
  3. SULFASALAZINE. [Suspect]
     Active Substance: SULFASALAZINE
     Indication: PRODUCT USED FOR UNKNOWN INDICATION
     Route: 065
  4. PLAQUENIL [Concomitant]
     Active Substance: HYDROXYCHLOROQUINE SULFATE
  5. XELJANZ [Concomitant]
     Active Substance: TOFACITINIB CITRATE
     Route: 065
  6. ENBREL [Suspect]
     Active Substance: ETANERCEPT
     Indication: RHEUMATOID ARTHRITIS
     Route: 058
  7. HUMIRA [Suspect]
     Active Substance: ADALIMUMAB
     Route: 058
  8. PREDNISONE. [Concomitant]
     Active Substance: PREDNISONE
     Indication: PRODUCT USED FOR UNKNOWN INDICATION
     Route: 065
  9. INFLIXIMAB [Suspect]
     Active Substance: INFLIXIMAB
     Indication: RHEUMATOID ARTHRITIS
     Route: 042
  10. HYDROXYCHLOROQUINE [Concomitant]
     Active Substance: HYDROXYCHLOROQUINE
     Route: 065
  11. HUMIRA [Suspect]
     Active Substance: ADALIMUMAB
     Indication: PRODUCT USED FOR UNKNOWN INDICATION
     Route: 058
  12. INFLIXIMAB [Suspect]
     Active Substance: INFLIXIMAB
     Route: 042
  13. LEFLUNOMIDE. [Suspect]
     Active Substance: LEFLUNOMIDE
     Indication: PRODUCT USED FOR UNKNOWN INDICATION
     Route: 065

REACTIONS (20)
  - Rheumatoid arthritis [Recovered/Resolved]
  - Urinary tract infection [Recovered/Resolved]
  - Vomiting [Recovered/Resolved]
  - Gastric haemorrhage [Recovered/Resolved]
  - Bone erosion [Recovered/Resolved]
  - Infusion related reaction [Recovered/Resolved]
  - Musculoskeletal disorder [Recovered/Resolved]
  - Nausea [Recovered/Resolved]
  - Drug hypersensitivity [Recovered/Resolved]
  - Malaise [Recovered/Resolved]
  - Influenza like illness [Recovered/Resolved]
  - Gastric disorder [Recovered/Resolved]
  - Rheumatoid nodule [Recovered/Resolved]
  - Drug intolerance [Recovered/Resolved]
  - Joint swelling [Recovered/Resolved]
  - Substance-induced psychotic disorder [Recovered/Resolved]
  - Drug ineffective [Recovered/Resolved]
  - Arthralgia [Recovered/Resolved]
  - Hepatic enzyme increased [Recovered/Resolved]
  - Headache [Recovered/Resolved]
